FAERS Safety Report 5142923-4 (Version None)
Quarter: 2006Q4

REPORT INFORMATION
  Report Type: 
  Country: None (occurrence: None)
  Receive Date: 20061030
  Receipt Date: 20061016
  Transmission Date: 20070319
  Serious: Yes (Death)
  Sender: FDA-Public Use
  Company Number: T200601199

PATIENT
  Sex: Male

DRUGS (1)
  1. ACETAMINOPHEN/CODEINE TABLETS (ACETAMINOPHEN, CODEINE PHOSPHATE)TABLET [Suspect]

REACTIONS (7)
  - DRUG EXPOSURE VIA BREAST MILK [None]
  - DRUG TOXICITY [None]
  - FEEDING DISORDER NEONATAL [None]
  - LETHARGY [None]
  - NEONATAL DISORDER [None]
  - ORAL INTAKE REDUCED [None]
  - SKIN DISCOLOURATION [None]
